FAERS Safety Report 9311871 (Version 9)
Quarter: 2014Q4

REPORT INFORMATION
  Report Type: Report from Study
  Country: TR (occurrence: TR)
  Receive Date: 20130528
  Receipt Date: 20141022
  Transmission Date: 20150529
  Serious: Yes (Death, Hospitalization, Other)
  Sender: FDA-Public Use
  Company Number: PHHY2013TR020921

PATIENT
  Age: 57 Year
  Sex: Male

DRUGS (1)
  1. TASIGNA [Suspect]
     Active Substance: NILOTINIB
     Indication: CHRONIC MYELOID LEUKAEMIA
     Dosage: 800 MG, DAILY
     Route: 048
     Dates: start: 20100726

REACTIONS (14)
  - Respiratory disorder [Fatal]
  - Lung adenocarcinoma [Fatal]
  - Pulmonary mass [Not Recovered/Not Resolved]
  - Metastases to pleura [Unknown]
  - Second primary malignancy [Fatal]
  - Dyspnoea [Unknown]
  - Pulmonary oedema [Unknown]
  - Chest discomfort [Unknown]
  - Vomiting [Unknown]
  - Haemoptysis [Unknown]
  - Blood glucose increased [Unknown]
  - Lung disorder [Unknown]
  - Tension [Unknown]
  - Musculoskeletal chest pain [Unknown]

NARRATIVE: CASE EVENT DATE: 201304
